FAERS Safety Report 12944278 (Version 6)
Quarter: 2017Q2

REPORT INFORMATION
  Report Type: Report from Study
  Country: US (occurrence: US)
  Receive Date: 20161115
  Receipt Date: 20170606
  Transmission Date: 20170830
  Serious: Yes (Hospitalization)
  Sender: FDA-Public Use
  Company Number: US-OTSUKA-2016_026219

PATIENT
  Age: 65 Year
  Sex: Female

DRUGS (1)
  1. ARIPIPRAZOLE (DUAL CHAMBER) [Suspect]
     Active Substance: ARIPIPRAZOLE
     Indication: PRODUCT USED FOR UNKNOWN INDICATION
     Dosage: 400 MG, QM
     Route: 030
     Dates: start: 201608

REACTIONS (10)
  - Neck pain [Not Recovered/Not Resolved]
  - Insomnia [Unknown]
  - Pain in extremity [Recovering/Resolving]
  - Inappropriate schedule of drug administration [Unknown]
  - Musculoskeletal pain [Unknown]
  - Musculoskeletal stiffness [Unknown]
  - Hospitalisation [Unknown]
  - Tachycardia [Not Recovered/Not Resolved]
  - Cough [Recovering/Resolving]
  - Chest pain [Unknown]

NARRATIVE: CASE EVENT DATE: 201610
